FAERS Safety Report 22372011 (Version 1)
Quarter: 2023Q2

REPORT INFORMATION
  Report Type: Spontaneous
  Country: US (occurrence: US)
  Receive Date: 20230526
  Receipt Date: 20230526
  Transmission Date: 20230722
  Serious: No
  Sender: FDA-Public Use
  Company Number: US-MEITHEAL-2022MPSPO00157

PATIENT
  Sex: Male

DRUGS (1)
  1. CISATRACURIUM BESYLATE [Suspect]
     Active Substance: CISATRACURIUM BESYLATE
     Indication: Neuromuscular blockade

REACTIONS (2)
  - Drug ineffective [Unknown]
  - Product quality issue [Unknown]
